FAERS Safety Report 11325157 (Version 3)
Quarter: 2015Q4

REPORT INFORMATION
  Report Type: Spontaneous
  Country: FR (occurrence: FR)
  Receive Date: 20150730
  Receipt Date: 20151002
  Transmission Date: 20160304
  Serious: Yes (Hospitalization)
  Sender: FDA-Public Use
  Company Number: FR-PFIZER INC-2015253425

PATIENT
  Age: 79 Year
  Sex: Female

DRUGS (9)
  1. DIFFU K [Concomitant]
     Active Substance: POTASSIUM CHLORIDE
     Dosage: UNK
     Dates: end: 201502
  2. TERCIAN [Concomitant]
     Active Substance: CYAMEMAZINE
     Dosage: UNK
  3. TRIATEC [Suspect]
     Active Substance: RAMIPRIL
     Indication: HYPERTENSION
     Dosage: 1 DF, DAILY
     Route: 048
     Dates: end: 20150209
  4. NOVONORM [Concomitant]
     Active Substance: REPAGLINIDE
     Dosage: UNK
  5. LERCAN [Interacting]
     Active Substance: LERCANIDIPINE
     Indication: HYPERTENSION
     Dosage: 1 DF, DAILY
     Route: 048
  6. CELIPROLOL HCL [Interacting]
     Active Substance: CELIPROLOL
     Indication: HYPERTENSION
     Dosage: 100 MG, 2X/DAY
     Route: 048
  7. LASILIX [Interacting]
     Active Substance: FUROSEMIDE
     Indication: HYPERTENSION
     Dosage: 1 DF, DAILY
     Route: 048
     Dates: end: 20150209
  8. MINISINTROM [Concomitant]
     Active Substance: ACENOCOUMAROL
     Dosage: UNK
  9. HUMALOG [Concomitant]
     Active Substance: INSULIN LISPRO
     Dosage: UNK

REACTIONS (3)
  - Hypotension [Recovered/Resolved]
  - Drug interaction [Unknown]
  - Malaise [Recovered/Resolved]

NARRATIVE: CASE EVENT DATE: 20150209
